FAERS Safety Report 8275616 (Version 3)
Quarter: 2012Q4

REPORT INFORMATION
  Report Type: Report from Study
  Country: US (occurrence: US)
  Receive Date: 20111205
  Receipt Date: 20120910
  Transmission Date: 20130627
  Serious: Yes (Other)
  Sender: FDA-Public Use
  Company Number: US-ROCHE-1011727

PATIENT
  Age: 44 Year
  Sex: Male
  Weight: 101.2 kg

DRUGS (6)
  1. PEGASYS [Suspect]
     Indication: HEPATITIS C
     Route: 058
  2. COPEGUS [Suspect]
     Indication: HEPATITIS C
     Route: 048
  3. BACLOFEN [Concomitant]
     Route: 048
     Dates: start: 20081201
  4. LORAZEPAM [Concomitant]
     Route: 048
     Dates: start: 20081201
  5. AMBIEN [Concomitant]
     Route: 048
     Dates: start: 20081201
  6. UNSPECIFIED INGREDIENT [Suspect]
     Indication: HEPATITIS C
     Route: 048

REACTIONS (1)
  - Transient ischaemic attack [Recovered/Resolved]
